FAERS Safety Report 7238178-7 (Version None)
Quarter: 2011Q1

REPORT INFORMATION
  Report Type: 
  Country: None (occurrence: None)
  Receive Date: 20110121
  Receipt Date: 20110112
  Transmission Date: 20110831
  Serious: Yes (Other)
  Sender: FDA-Public Use
  Company Number: JP-JNJFOC-20101004278

PATIENT
  Sex: Female

DRUGS (13)
  1. VANCOMYCIN [Concomitant]
     Indication: PSEUDOMEMBRANOUS COLITIS
     Route: 048
  2. PANTHENOL [Concomitant]
     Indication: ILEUS PARALYTIC
     Route: 042
  3. ALBUMIN (HUMAN) [Concomitant]
     Route: 065
  4. BIAPENEM [Concomitant]
     Indication: INFECTION PROPHYLAXIS
  5. OMEPRAL [Concomitant]
     Indication: ULCER
     Route: 042
  6. NORVASC [Concomitant]
     Indication: HYPERTENSION
     Route: 048
  7. FINIBAX [Suspect]
     Indication: INFECTION PROPHYLAXIS
     Route: 041
  8. PROGRAF [Concomitant]
     Indication: IMMUNOSUPPRESSION
     Route: 048
  9. THYRADIN [Concomitant]
     Indication: HYPOTHYROIDISM
     Route: 048
  10. ADALAT [Concomitant]
     Indication: HYPERTENSION
     Route: 048
  11. CELLCEPT [Concomitant]
     Indication: IMMUNOSUPPRESSION
     Route: 048
  12. MEDROL [Concomitant]
     Indication: IMMUNOSUPPRESSION
     Route: 048
  13. NI [Concomitant]
     Indication: GASTROINTESTINAL HYPERMOTILITY
     Route: 048

REACTIONS (2)
  - EPILEPSY [None]
  - OFF LABEL USE [None]
